FAERS Safety Report 13164458 (Version 1)
Quarter: 2017Q1

REPORT INFORMATION
  Report Type: Spontaneous
  Country: US (occurrence: US)
  Receive Date: 20170130
  Receipt Date: 20170130
  Transmission Date: 20170428
  Serious: Yes (Other)
  Sender: FDA-Public Use
  Company Number: US-ABBVIE-16P-163-1687407-00

PATIENT
  Sex: Male

DRUGS (1)
  1. LUPRON DEPOT [Suspect]
     Active Substance: LEUPROLIDE ACETATE
     Indication: PROSTATE CANCER
     Route: 050
     Dates: start: 20150328

REACTIONS (4)
  - Cerebrovascular accident [Unknown]
  - Depression [Unknown]
  - Incontinence [Unknown]
  - Pain [Unknown]

NARRATIVE: CASE EVENT DATE: 20150424
